FAERS Safety Report 18188138 (Version 4)
Quarter: 2020Q3

REPORT INFORMATION
  Report Type: Spontaneous
  Country: US (occurrence: US)
  Receive Date: 20200824
  Receipt Date: 20200922
  Transmission Date: 20201103
  Serious: Yes (Death)
  Sender: FDA-Public Use
  Company Number: US-BIOVITRUM-2020US4334

PATIENT
  Age: 1 Year
  Sex: Male

DRUGS (1)
  1. ANAKINRA [Suspect]
     Active Substance: ANAKINRA
     Indication: STILL^S DISEASE

REACTIONS (3)
  - Lung disorder [Fatal]
  - Off label use [Not Recovered/Not Resolved]
  - Drug reaction with eosinophilia and systemic symptoms [Fatal]
